FAERS Safety Report 5692894-7 (Version None)
Quarter: 2008Q2

REPORT INFORMATION
  Report Type: 
  Country: None (occurrence: None)
  Receive Date: 20080326
  Receipt Date: 20071126
  Transmission Date: 20081010
  Serious: No
  Sender: FDA-Public Use
  Company Number: US-CVT-070182

PATIENT
  Age: 45 Year
  Sex: Female

DRUGS (9)
  1. RANEXA [Suspect]
     Indication: ANGINA PECTORIS
     Dosage: 500 MG, BID, ORAL
     Route: 048
     Dates: start: 20071026, end: 20071120
  2. DILTIAZEM/00489701/(DILTIAZEM) [Concomitant]
  3. NIASAPAN (NICOTINIC ACID) [Concomitant]
  4. NITROGLYCERIN [Concomitant]
  5. PLAVIX [Concomitant]
  6. PROTONIX/01263201/(PANTOPRAZOLE) [Concomitant]
  7. TOPROL-XL [Concomitant]
  8. VESICARE [Concomitant]
  9. SIMVASTATIN [Concomitant]

REACTIONS (1)
  - VISUAL DISTURBANCE [None]
